FAERS Safety Report 9663488 (Version 2)
Quarter: 2014Q1

REPORT INFORMATION
  Report Type: Spontaneous
  Country: IE (occurrence: IE)
  Receive Date: 20131101
  Receipt Date: 20140314
  Transmission Date: 20141002
  Serious: No
  Sender: FDA-Public Use
  Company Number: IE-ASTRAZENECA-2013SE79110

PATIENT
  Age: 14 Year
  Sex: Female
  Weight: 36.3 kg

DRUGS (1)
  1. NEXIUM IV [Suspect]
     Indication: OESOPHAGEAL HAEMORRHAGE
     Route: 040
     Dates: start: 20131023, end: 20131029

REACTIONS (1)
  - No adverse event [Unknown]
